FAERS Safety Report 16785217 (Version 1)
Quarter: 2019Q3

REPORT INFORMATION
  Report Type: Spontaneous
  Country: US (occurrence: US)
  Receive Date: 20190909
  Receipt Date: 20190909
  Transmission Date: 20191005
  Serious: No
  Sender: FDA-Public Use
  Company Number: US-MYLANLABS-2019M1080811

PATIENT
  Age: 70 Year
  Sex: Female
  Weight: 57 kg

DRUGS (1)
  1. OLUX [Suspect]
     Active Substance: CLOBETASOL PROPIONATE
     Indication: PRURITUS
     Dosage: UNK
     Route: 003
     Dates: start: 20190825, end: 20190825

REACTIONS (9)
  - Incorrect product formulation administered [Unknown]
  - Tension [Recovered/Resolved]
  - Presyncope [Recovered/Resolved]
  - Expired product administered [Not Recovered/Not Resolved]
  - Insomnia [Recovered/Resolved]
  - Wrong technique in product usage process [Unknown]
  - Anxiety [Recovered/Resolved]
  - Off label use [Not Recovered/Not Resolved]
  - Extra dose administered [Unknown]

NARRATIVE: CASE EVENT DATE: 20190825
